FAERS Safety Report 19174863 (Version 1)
Quarter: 2021Q2

REPORT INFORMATION
  Report Type: Spontaneous
  Country: TR (occurrence: TR)
  Receive Date: 20210423
  Receipt Date: 20210423
  Transmission Date: 20210717
  Serious: Yes (Other)
  Sender: FDA-Public Use
  Company Number: TR-BAYER-2021-127304

PATIENT
  Age: 50 Year
  Sex: Female

DRUGS (1)
  1. QLAIRISTA [Suspect]
     Active Substance: DIENOGEST\ESTRADIOL VALERATE
     Indication: HEAVY MENSTRUAL BLEEDING
     Dosage: 1 DF, QD
     Route: 048
     Dates: start: 20200912, end: 20210412

REACTIONS (3)
  - Hypoaesthesia [Not Recovered/Not Resolved]
  - Embolism venous [Not Recovered/Not Resolved]
  - Pain in extremity [Not Recovered/Not Resolved]

NARRATIVE: CASE EVENT DATE: 20210412
